FAERS Safety Report 13474081 (Version 1)
Quarter: 2017Q2

REPORT INFORMATION
  Report Type: Spontaneous
  Country: US (occurrence: US)
  Receive Date: 20170424
  Receipt Date: 20170424
  Transmission Date: 20170830
  Serious: Yes (Hospitalization)
  Sender: FDA-Public Use
  Company Number: US-SA-2016SA081898

PATIENT
  Age: 61 Year
  Sex: Female

DRUGS (2)
  1. ENOXAPARIN SODIUM - WINTHROP [Suspect]
     Active Substance: ENOXAPARIN SODIUM
     Indication: URINARY BLADDER HAEMORRHAGE
     Route: 051
     Dates: start: 20160412
  2. ENOXAPARIN SODIUM - WINTHROP [Suspect]
     Active Substance: ENOXAPARIN SODIUM
     Indication: URINARY BLADDER HAEMORRHAGE
     Route: 051
     Dates: start: 201509, end: 20160411

REACTIONS (3)
  - Haemorrhage [Not Recovered/Not Resolved]
  - Fear of disease [Not Recovered/Not Resolved]
  - Product quality issue [Unknown]
